FAERS Safety Report 16320601 (Version 2)
Quarter: 2019Q2

REPORT INFORMATION
  Report Type: Spontaneous
  Country: JP (occurrence: JP)
  Receive Date: 20190516
  Receipt Date: 20190621
  Transmission Date: 20190711
  Serious: Yes (Death)
  Sender: FDA-Public Use
  Company Number: JP-PFIZER INC-2019205770

PATIENT
  Age: 72 Year
  Sex: Female
  Weight: 48.7 kg

DRUGS (6)
  1. CARBAZOCHROME [Concomitant]
     Active Substance: CARBAZOCHROME
     Indication: LUNG NEOPLASM MALIGNANT
     Dosage: 30 MG, 3X/DAY
     Route: 048
     Dates: start: 20190208
  2. LORBRENA [Suspect]
     Active Substance: LORLATINIB
     Indication: LUNG NEOPLASM MALIGNANT
     Dosage: 100 MG, 1X/DAY
     Route: 048
     Dates: start: 20190222, end: 20190304
  3. OMEPRAZOLE. [Concomitant]
     Active Substance: OMEPRAZOLE
     Indication: LUNG NEOPLASM MALIGNANT
     Dosage: 20 MG, 1X/DAY
     Route: 048
     Dates: start: 20190208
  4. FEXOFENADINE [Concomitant]
     Active Substance: FEXOFENADINE\FEXOFENADINE HYDROCHLORIDE
     Indication: LUNG NEOPLASM MALIGNANT
     Dosage: 60 UNK, 2X/DAY
     Route: 048
     Dates: start: 20190208
  5. AMBROXOL [Concomitant]
     Active Substance: AMBROXOL
     Indication: LUNG NEOPLASM MALIGNANT
     Dosage: 15 MG, 3X/DAY
     Route: 048
     Dates: start: 20190208
  6. ASTOMIN [ASTEMIZOLE] [Concomitant]
     Indication: LUNG NEOPLASM MALIGNANT
     Dosage: 20 MG, 3X/DAY
     Route: 048
     Dates: start: 20190208

REACTIONS (1)
  - Neoplasm progression [Fatal]

NARRATIVE: CASE EVENT DATE: 201903
